FAERS Safety Report 16719713 (Version 8)
Quarter: 2019Q4

REPORT INFORMATION
  Report Type: Spontaneous
  Country: US (occurrence: US)
  Receive Date: 20190820
  Receipt Date: 20191202
  Transmission Date: 20200122
  Serious: Yes (Other)
  Sender: FDA-Public Use
  Company Number: US-PFIZER INC-2019351885

PATIENT
  Age: 93 Year
  Sex: Female
  Weight: 62.6 kg

DRUGS (1)
  1. ADVIL LIQUI-GELS [Suspect]
     Active Substance: IBUPROFEN
     Indication: PAIN
     Dosage: 200 MG, UNK
     Route: 048

REACTIONS (6)
  - Product physical issue [Unknown]
  - Rash [Unknown]
  - Oropharyngeal pain [Unknown]
  - Throat irritation [Unknown]
  - Epistaxis [Unknown]
  - Allergic reaction to excipient [Unknown]

NARRATIVE: CASE EVENT DATE: 20191023
